FAERS Safety Report 9610773 (Version 1)
Quarter: 2013Q4

REPORT INFORMATION
  Report Type: Spontaneous
  Country: JP (occurrence: JP)
  Receive Date: 20131009
  Receipt Date: 20131009
  Transmission Date: 20140711
  Serious: Yes (Hospitalization)
  Sender: FDA-Public Use
  Company Number: JP-BAXTER-2013BAX038682

PATIENT
  Sex: Male

DRUGS (2)
  1. DIANEAL-N PD-4 1.5 PD SOLUTION [Suspect]
     Indication: RENAL FAILURE CHRONIC
     Route: 033
     Dates: start: 20130208
  2. DIANEAL-N PD-4 1.5 PD SOLUTION [Suspect]
     Route: 033
     Dates: start: 20131001

REACTIONS (2)
  - Hernia [Recovered/Resolved]
  - Condition aggravated [Recovered/Resolved]
